APPROVED DRUG PRODUCT: VYNDAQEL
Active Ingredient: TAFAMIDIS MEGLUMINE
Strength: 20MG
Dosage Form/Route: CAPSULE;ORAL
Application: N211996 | Product #001
Applicant: FOLDRX PHARMACEUTICALS LLC A WHOLLY OWNED SUB OF PFIZER INC
Approved: May 3, 2019 | RLD: Yes | RS: No | Type: DISCN

PATENTS:
Patent 7214696 | Expires: Dec 19, 2026
Patent 7214695 | Expires: Dec 19, 2026

EXCLUSIVITY:
Code: ODE-237 | Date: May 3, 2026